FAERS Safety Report 12837220 (Version 3)
Quarter: 2016Q4

REPORT INFORMATION
  Report Type: Spontaneous
  Country: GR (occurrence: GR)
  Receive Date: 20161011
  Receipt Date: 20161123
  Transmission Date: 20170207
  Serious: Yes (Life-Threatening, Hospitalization, Other)
  Sender: FDA-Public Use
  Company Number: GR-ELI_LILLY_AND_COMPANY-GR201610002712

PATIENT
  Sex: Female

DRUGS (1)
  1. OLANSEK [Suspect]
     Active Substance: OLANZAPINE
     Indication: SCHIZOPHRENIA
     Dosage: 15 MG, BID
     Route: 065
     Dates: start: 201604

REACTIONS (6)
  - Coma [Recovered/Resolved]
  - Blood sodium decreased [Recovered/Resolved]
  - Overdose [Unknown]
  - Polyuria [Recovered/Resolved]
  - Polydipsia [Recovered/Resolved]
  - Epilepsy [Recovered/Resolved]

NARRATIVE: CASE EVENT DATE: 2016
